FAERS Safety Report 23333363 (Version 1)
Quarter: 2023Q4

REPORT INFORMATION
  Report Type: Spontaneous
  Country: JP (occurrence: JP)
  Receive Date: 20231222
  Receipt Date: 20231222
  Transmission Date: 20240110
  Serious: Yes (Other)
  Sender: FDA-Public Use
  Company Number: JP-MSD-2312JPN002624J

PATIENT
  Age: 70 Year
  Sex: Male

DRUGS (4)
  1. CUBICIN [Suspect]
     Active Substance: DAPTOMYCIN
     Indication: Staphylococcal infection
     Dosage: UNK
     Route: 042
  2. PREDNISOLONE [Concomitant]
     Active Substance: PREDNISOLONE
     Dosage: 6 MILLIGRAM/DAY
     Route: 048
  3. VANCOMYCIN HYDROCHLORIDE [Concomitant]
     Active Substance: VANCOMYCIN HYDROCHLORIDE
     Indication: Bacterial infection
     Dosage: UNK
     Route: 065
  4. CEFAZOLIN SODIUM [Concomitant]
     Active Substance: CEFAZOLIN SODIUM
     Indication: Bacterial infection
     Dosage: UNK
     Route: 065

REACTIONS (1)
  - Interstitial lung disease [Unknown]
